FAERS Safety Report 8220848-5 (Version None)
Quarter: 2012Q1

REPORT INFORMATION
  Report Type: 
  Country: None (occurrence: None)
  Receive Date: 20120320
  Receipt Date: 20120315
  Transmission Date: 20120608
  Serious: Yes (Other)
  Sender: FDA-Public Use
  Company Number: GB-PFIZER INC-2012070548

PATIENT
  Age: 51 Year
  Sex: Female

DRUGS (7)
  1. DIAZEPAM [Concomitant]
     Indication: ANXIETY
     Dosage: 10 MG, 4X/DAY
  2. KLONOPIN [Concomitant]
  3. FENTANYL [Concomitant]
     Dosage: 50 UG, ALTERNATE DAY
  4. OXYCODONE HYDROCHLORIDE [Suspect]
     Dosage: 15 MG, 4X/DAY
  5. AMITRIPTYLINE [Concomitant]
  6. FENTANYL [Concomitant]
     Dosage: 75 UG, ALTERNATE DAY
  7. CYMBALTA [Concomitant]
     Indication: FIBROMYALGIA

REACTIONS (12)
  - DEPRESSION [None]
  - PAIN [None]
  - FIBROMYALGIA [None]
  - WEIGHT DECREASED [None]
  - AGORAPHOBIA [None]
  - SLEEP DISORDER [None]
  - ANXIETY [None]
  - DENTAL CARIES [None]
  - SUICIDE ATTEMPT [None]
  - WITHDRAWAL SYNDROME [None]
  - QUALITY OF LIFE DECREASED [None]
  - DRUG INEFFECTIVE [None]
